FAERS Safety Report 7075410-7 (Version None)
Quarter: 2010Q4

REPORT INFORMATION
  Report Type: 
  Country: None (occurrence: None)
  Receive Date: 20101030
  Receipt Date: 20100908
  Transmission Date: 20110411
  Serious: No
  Sender: FDA-Public Use
  Company Number: US-WYE-H17472210

PATIENT
  Sex: Female

DRUGS (1)
  1. ADVIL PM [Suspect]
     Indication: INSOMNIA
     Dosage: 2-3 CAPLETS NIGHTLY OR AS NEEDED
     Route: 048
     Dates: start: 20100801

REACTIONS (2)
  - DRUG EFFECT DECREASED [None]
  - OVERDOSE [None]
